FAERS Safety Report 18471917 (Version 3)
Quarter: 2021Q1

REPORT INFORMATION
  Report Type: Report from Study
  Country: None (occurrence: BE)
  Receive Date: 20201105
  Receipt Date: 20210311
  Transmission Date: 20210419
  Serious: Yes (Other)
  Sender: FDA-Public Use
  Company Number: BE-ABBVIE-20K-013-3527898-00

PATIENT
  Age: 78 Year
  Sex: Male
  Weight: 73 kg

DRUGS (14)
  1. DUODOPA [Suspect]
     Active Substance: CARBIDOPA\LEVODOPA
     Dosage: MD= 10.2 ML, CD= 3.0 ML/HR DURING 16HRS, ED= 1.5 ML
     Route: 050
     Dates: start: 20200824, end: 20200828
  2. DUODOPA [Suspect]
     Active Substance: CARBIDOPA\LEVODOPA
     Dosage: MD= 10.2ML, CD= 3.6ML/HR DURING 16HRS, ED=2ML
     Route: 050
     Dates: start: 20200831, end: 20200925
  3. DUODOPA [Suspect]
     Active Substance: CARBIDOPA\LEVODOPA
     Dosage: MD= 10.2 ML, CD= 3.2 ML/HR DURING 16HRS, ED= 1.5 ML
     Route: 050
     Dates: start: 20200828, end: 20200831
  4. DUODOPA [Suspect]
     Active Substance: CARBIDOPA\LEVODOPA
     Dosage: MD= 10.2ML, CD= 3.8ML/HR DURING 16HRS, ED=2.5ML
     Route: 050
     Dates: start: 20201023, end: 20201102
  5. DUODOPA [Suspect]
     Active Substance: CARBIDOPA\LEVODOPA
     Dosage: MD= 10.2 ML, CD= 2.8 ML/HR DURING 16HRS, ED= 1.0 ML
     Route: 050
     Dates: start: 20200804, end: 20200806
  6. DUODOPA [Suspect]
     Active Substance: CARBIDOPA\LEVODOPA
     Dosage: MD= 10.2 ML, CD= 4.0 ML/HR DURING 16HRS, ED= 2.5 ML
     Route: 050
     Dates: start: 20210228, end: 20210308
  7. DUODOPA [Suspect]
     Active Substance: CARBIDOPA\LEVODOPA
     Dosage: MD= 10.2 ML, CD= 2.6 ML/HR DURING 16HRS, ED= 1.0 ML
     Route: 050
     Dates: start: 20200806, end: 20200810
  8. DUODOPA [Suspect]
     Active Substance: CARBIDOPA\LEVODOPA
     Dosage: MD= 10.2 ML, CD= 2.8 ML/HR DURING 16HRS, ED= 1.0 ML
     Route: 050
     Dates: start: 20200810, end: 20200817
  9. DUODOPA [Suspect]
     Active Substance: CARBIDOPA\LEVODOPA
     Indication: PARKINSON^S DISEASE
     Dosage: UNKNOWN DOSAGES
     Route: 050
     Dates: start: 20200127, end: 20200804
  10. DUODOPA [Suspect]
     Active Substance: CARBIDOPA\LEVODOPA
     Dosage: MD= 10.2 ML, CD= 4.1 ML/HR DURING 16HRS, ED= 2.7 ML
     Route: 050
     Dates: start: 20210210, end: 20210228
  11. DUODOPA [Suspect]
     Active Substance: CARBIDOPA\LEVODOPA
     Dosage: MD= 10.2 ML, CD= 4.0 ML/HR DURING 16HRS, ED= 3.5 ML
     Route: 050
     Dates: start: 20210308
  12. DUODOPA [Suspect]
     Active Substance: CARBIDOPA\LEVODOPA
     Dosage: MD= 10.2 ML, CD= 3 ML/HR DURING 16HRS, ED= 1.0 ML
     Route: 050
     Dates: start: 20200817, end: 20200824
  13. DUODOPA [Suspect]
     Active Substance: CARBIDOPA\LEVODOPA
     Dosage: MD= 7.2ML, CD= 3.6ML/HR DURING 16HRS, ED=2.5ML
     Route: 050
     Dates: start: 20200925, end: 20201023
  14. DUODOPA [Suspect]
     Active Substance: CARBIDOPA\LEVODOPA
     Dosage: MD= 10.2ML, CD= 4.0ML/HR DURING 16HRS, ED=2.5ML
     Route: 050
     Dates: start: 20201102, end: 20210210

REACTIONS (14)
  - Suicidal ideation [Unknown]
  - Gait disturbance [Not Recovered/Not Resolved]
  - Muscle rigidity [Not Recovered/Not Resolved]
  - Therapeutic product effect incomplete [Not Recovered/Not Resolved]
  - Musculoskeletal stiffness [Unknown]
  - Discomfort [Recovering/Resolving]
  - Freezing phenomenon [Not Recovered/Not Resolved]
  - Bradykinesia [Unknown]
  - Somnolence [Unknown]
  - Device breakage [Unknown]
  - Product dose omission in error [Unknown]
  - Freezing phenomenon [Unknown]
  - Discomfort [Unknown]
  - Dyskinesia [Unknown]

NARRATIVE: CASE EVENT DATE: 2020
